FAERS Safety Report 6695781-0 (Version None)
Quarter: 2010Q2

REPORT INFORMATION
  Report Type: 
  Country: None (occurrence: None)
  Receive Date: 20100423
  Receipt Date: 20100423
  Transmission Date: 20101027
  Serious: Yes (Other)
  Sender: FDA-Public Use
  Company Number: None

PATIENT
  Age: 48 Year
  Sex: Female

DRUGS (1)
  1. MELOXICAM [Suspect]
     Dates: start: 20100112, end: 20100414

REACTIONS (1)
  - HAEMORRHOIDAL HAEMORRHAGE [None]
